FAERS Safety Report 7097830-7 (Version None)
Quarter: 2010Q4

REPORT INFORMATION
  Report Type: 
  Country: None (occurrence: None)
  Receive Date: 20101112
  Receipt Date: 20101103
  Transmission Date: 20110411
  Serious: Yes (Other)
  Sender: FDA-Public Use
  Company Number: CA-JNJFOC-20101101984

PATIENT
  Sex: Female
  Weight: 76.6 kg

DRUGS (12)
  1. REMICADE [Suspect]
     Indication: RHEUMATOID ARTHRITIS
     Route: 042
  2. REMICADE [Suspect]
     Route: 042
  3. AMITRIPTYLINE HCL [Concomitant]
  4. SALBUTAMOL [Concomitant]
     Route: 055
  5. SALBUTAMOL [Concomitant]
     Route: 055
  6. PAROXETINE HCL [Concomitant]
  7. SPIRIVA [Concomitant]
  8. NEXIUM [Concomitant]
  9. PREDNISONE [Concomitant]
  10. DOMPERIDONE [Concomitant]
  11. CELEBREX [Concomitant]
  12. VITAMIN B-12 [Concomitant]
     Dosage: MONTHLY
     Route: 030

REACTIONS (7)
  - BLOOD PRESSURE INCREASED [None]
  - DIZZINESS [None]
  - HEADACHE [None]
  - IIIRD NERVE PARESIS [None]
  - INFUSION RELATED REACTION [None]
  - NAUSEA [None]
  - VISUAL IMPAIRMENT [None]
